FAERS Safety Report 5480898-9 (Version None)
Quarter: 2007Q4

REPORT INFORMATION
  Report Type: 
  Country: None (occurrence: None)
  Receive Date: 20071009
  Receipt Date: 20071008
  Transmission Date: 20080405
  Serious: Yes (Other)
  Sender: FDA-Public Use
  Company Number: US-GENENTECH-247272

PATIENT
  Sex: Female

DRUGS (2)
  1. ACTIVASE [Suspect]
     Indication: VASCULAR GRAFT OCCLUSION
     Dosage: 10 MG, UNK
     Dates: start: 20070905
  2. ACTIVASE [Suspect]
     Indication: PERIPHERAL ISCHAEMIA
     Dosage: 0.5 MG/HR, CONTINUOUS
     Route: 042
     Dates: start: 20070905

REACTIONS (1)
  - COMPARTMENT SYNDROME [None]
